FAERS Safety Report 13853359 (Version 1)
Quarter: 2017Q3

REPORT INFORMATION
  Report Type: Report from Study
  Country: MX (occurrence: MX)
  Receive Date: 20170810
  Receipt Date: 20170810
  Transmission Date: 20171127
  Serious: Yes (Hospitalization, Other)
  Sender: FDA-Public Use
  Company Number: PHHY2017MX117143

PATIENT
  Age: 51 Year
  Sex: Female

DRUGS (3)
  1. TRILEPTAL [Suspect]
     Active Substance: OXCARBAZEPINE
     Indication: TAENIASIS
     Dosage: 1 DF (600 MG), QD
     Route: 065
     Dates: start: 201610
  2. TRILEPTAL [Suspect]
     Active Substance: OXCARBAZEPINE
     Dosage: 1 DF, (300 MG) AT NIGHT
     Route: 065
  3. METICORTEN [Concomitant]
     Active Substance: PREDNISONE
     Indication: PRODUCT USED FOR UNKNOWN INDICATION
     Dosage: 5 MG, UNK
     Route: 065

REACTIONS (3)
  - Syncope [Unknown]
  - Product use in unapproved indication [Not Recovered/Not Resolved]
  - Blood electrolytes decreased [Unknown]

NARRATIVE: CASE EVENT DATE: 201610
